FAERS Safety Report 23363836 (Version 1)
Quarter: 2024Q1

REPORT INFORMATION
  Report Type: Spontaneous
  Country: US (occurrence: US)
  Receive Date: 20240104
  Receipt Date: 20240104
  Transmission Date: 20240410
  Serious: Yes (Life-Threatening, Hospitalization, Other)
  Sender: FDA-Public Use
  Company Number: US-MLMSERVICE-20231221-4737275-1

PATIENT
  Age: 37 Year
  Sex: Male

DRUGS (1)
  1. CIPROFLOXACIN [Suspect]
     Active Substance: CIPROFLOXACIN
     Indication: Epididymitis
     Dosage: 10-DAY COURSE

REACTIONS (5)
  - Aortic aneurysm [Recovering/Resolving]
  - Ventricular extrasystoles [Unknown]
  - Electrocardiogram ST segment elevation [Unknown]
  - Bicuspid aortic valve [Recovering/Resolving]
  - Sinus tachycardia [Unknown]
